FAERS Safety Report 26043677 (Version 1)
Quarter: 2025Q4

REPORT INFORMATION
  Report Type: Report from Study
  Country: EG (occurrence: EG)
  Receive Date: 20251113
  Receipt Date: 20251113
  Transmission Date: 20260118
  Serious: Yes (Other)
  Sender: ABBVIE
  Company Number: EG-ABBVIE-6543475

PATIENT
  Age: 53 Year
  Sex: Female

DRUGS (4)
  1. HUMIRA [Suspect]
     Active Substance: ADALIMUMAB
     Indication: Uveitis
     Route: 058
     Dates: start: 20250525, end: 202509
  2. HUMIRA [Suspect]
     Active Substance: ADALIMUMAB
     Indication: Rheumatoid arthritis
     Dosage: ONE SYRINGE
     Route: 058
     Dates: start: 20251013
  3. FOLIC ACID [Concomitant]
     Active Substance: FOLIC ACID
     Indication: Uveitis
     Dosage: 2 TABLET
  4. Imutrexate [Concomitant]
     Indication: Uveitis
     Dosage: ONE TABLET EVERY WEEK
     Route: 048

REACTIONS (5)
  - Retinal detachment [Recovering/Resolving]
  - Fatigue [Unknown]
  - Eye discharge [Recovering/Resolving]
  - Pain in extremity [Recovering/Resolving]
  - Immune system disorder [Unknown]

NARRATIVE: CASE EVENT DATE: 20250901
